FAERS Safety Report 5141180-2 (Version None)
Quarter: 2006Q4

REPORT INFORMATION
  Report Type: 
  Country: None (occurrence: None)
  Receive Date: 20061101
  Receipt Date: 20061024
  Transmission Date: 20070319
  Serious: Yes (Other)
  Sender: FDA-Public Use
  Company Number: US-BAYER-200614442BCC

PATIENT
  Age: 56 Year
  Sex: Female
  Weight: 102 kg

DRUGS (9)
  1. ALEVE [Suspect]
     Indication: DRUG USE FOR UNKNOWN INDICATION
     Route: 048
     Dates: end: 20060801
  2. BYETTA [Suspect]
     Indication: DIABETES MELLITUS NON-INSULIN-DEPENDENT
     Dosage: TOTAL DAILY DOSE: 10 ?G  UNIT DOSE: 0.25 MG/ML
     Route: 058
     Dates: start: 20060301, end: 20060101
  3. BYETTA [Suspect]
     Dosage: TOTAL DAILY DOSE: 10 ?G  UNIT DOSE: 0.25 MG/ML
     Route: 058
     Dates: start: 20060705
  4. BYETTA [Suspect]
     Dosage: TOTAL DAILY DOSE: 20 ?G  UNIT DOSE: 0.25 MG/ML
     Route: 058
     Dates: start: 20060101, end: 20060501
  5. HUMALOG [Concomitant]
  6. GLIPIZIDE [Concomitant]
  7. NPH INSULIN [Concomitant]
  8. PRILOSEC [Concomitant]
     Dates: start: 20060801
  9. CYTOTEC [Concomitant]
     Dates: start: 20060801

REACTIONS (11)
  - ABDOMINAL PAIN UPPER [None]
  - COLONIC POLYP [None]
  - COSTOCHONDRITIS [None]
  - DECREASED APPETITE [None]
  - DRY SKIN [None]
  - DUODENAL ULCER [None]
  - DYSPEPSIA [None]
  - GASTRITIS EROSIVE [None]
  - HEART RATE DECREASED [None]
  - ORAL CAVITY FISTULA [None]
  - SKIN EXFOLIATION [None]
